FAERS Safety Report 21423004 (Version 2)
Quarter: 2025Q1

REPORT INFORMATION
  Report Type: Spontaneous
  Country: JP (occurrence: JP)
  Receive Date: 20221007
  Receipt Date: 20250124
  Transmission Date: 20250408
  Serious: Yes (Hospitalization)
  Sender: ELI LILLY AND COMPANY
  Company Number: JP-ELI_LILLY_AND_COMPANY-JP202206011630

PATIENT
  Age: 70 Year
  Sex: Female

DRUGS (1)
  1. DULOXETINE HYDROCHLORIDE [Suspect]
     Active Substance: DULOXETINE HYDROCHLORIDE
     Indication: Post herpetic neuralgia
     Dosage: 60 MG, DAILY
     Route: 048

REACTIONS (11)
  - Sleep disorder [Recovered/Resolved]
  - Hypoaesthesia [Recovered/Resolved]
  - Abulia [Recovered/Resolved]
  - Withdrawal syndrome [Recovered/Resolved]
  - Malaise [Recovered/Resolved]
  - Decreased appetite [Recovered/Resolved]
  - Hyperhidrosis [Recovered/Resolved]
  - Dizziness [Recovered/Resolved]
  - Feeling hot [Recovered/Resolved]
  - Off label use [Unknown]
  - Intentional product misuse [Unknown]
